FAERS Safety Report 7016963-4 (Version None)
Quarter: 2010Q3

REPORT INFORMATION
  Report Type: 
  Country: None (occurrence: None)
  Receive Date: 20100927
  Receipt Date: 20100915
  Transmission Date: 20110219
  Serious: Yes (Other)
  Sender: FDA-Public Use
  Company Number: JP-PFIZER INC-2010116980

PATIENT
  Age: 77 Year
  Sex: Male

DRUGS (5)
  1. LYRICA [Suspect]
     Dosage: 150 MG/DAY
     Route: 048
     Dates: start: 20100806, end: 20100906
  2. CODEINE PHOSPHATE [Concomitant]
     Dosage: 20 MG/DAY
     Route: 048
     Dates: end: 20100906
  3. MYSLEE [Concomitant]
     Dosage: 5 MG/DAY
     Route: 048
     Dates: end: 20100906
  4. PAXIL [Concomitant]
     Dosage: UNK
     Route: 048
     Dates: end: 20100906
  5. GASMOTIN [Concomitant]
     Dosage: UNK
     Route: 048
     Dates: end: 20100906

REACTIONS (5)
  - CONFUSIONAL STATE [None]
  - EXCORIATION [None]
  - FALL [None]
  - HEPATIC FUNCTION ABNORMAL [None]
  - LOSS OF CONSCIOUSNESS [None]
